FAERS Safety Report 14202954 (Version 2)
Quarter: 2017Q4

REPORT INFORMATION
  Report Type: Report from Study
  Country: None (occurrence: SE)
  Receive Date: 20171119
  Receipt Date: 20171129
  Transmission Date: 20180321
  Serious: Yes (Death)
  Sender: FDA-Public Use
  Company Number: SE-ABBVIE-17K-150-2166193-00

PATIENT
  Sex: Male
  Weight: 57 kg

DRUGS (2)
  1. DUODOPA [Suspect]
     Active Substance: CARBIDOPA\LEVODOPA
     Indication: PARKINSON^S DISEASE
     Route: 050
     Dates: start: 20170602
  2. DUODOPA [Suspect]
     Active Substance: CARBIDOPA\LEVODOPA
     Route: 050
     Dates: start: 20170602, end: 20171114

REACTIONS (3)
  - Pulmonary oedema [Fatal]
  - Oesophageal carcinoma [Fatal]
  - Feeding disorder [Fatal]

NARRATIVE: CASE EVENT DATE: 2017
